FAERS Safety Report 4684568-6 (Version None)
Quarter: 2005Q2

REPORT INFORMATION
  Report Type: 
  Country: None (occurrence: None)
  Receive Date: 20050531
  Receipt Date: 20050311
  Transmission Date: 20051028
  Serious: Yes (Hospitalization)
  Sender: FDA-Public Use
  Company Number: USA050393054

PATIENT
  Age: 18 Year
  Sex: Male

DRUGS (2)
  1. ZYPREXA [Suspect]
     Dosage: 10 MG
  2. TEGRETOL (CARBAMAZEPINE RIVOPHARM) [Concomitant]

REACTIONS (2)
  - BIPOLAR DISORDER [None]
  - BLOOD GLUCOSE INCREASED [None]
